FAERS Safety Report 6753263-1 (Version None)
Quarter: 2010Q2

REPORT INFORMATION
  Report Type: 
  Country: None (occurrence: None)
  Receive Date: 20100603
  Receipt Date: 20100519
  Transmission Date: 20101027
  Serious: Yes (Other)
  Sender: FDA-Public Use
  Company Number: ES-CELGENEUS-144-21880-10021426

PATIENT
  Sex: Male
  Weight: 83 kg

DRUGS (6)
  1. REVLIMID [Suspect]
     Indication: MULTIPLE MYELOMA
     Route: 048
     Dates: start: 20100401
  2. REVLIMID [Suspect]
     Route: 048
     Dates: start: 20100201, end: 20100301
  3. REVLIMID [Suspect]
     Route: 048
     Dates: start: 20100101
  4. REVLIMID [Suspect]
     Route: 048
     Dates: start: 20091102, end: 20091201
  5. EXJADE [Concomitant]
     Indication: IRON OVERLOAD
     Route: 048
     Dates: start: 20090930, end: 20091223
  6. ARANESP [Concomitant]
     Route: 058
     Dates: start: 20090101, end: 20100414

REACTIONS (1)
  - HEPATOTOXICITY [None]
